FAERS Safety Report 10039072 (Version 1)
Quarter: 2014Q1

REPORT INFORMATION
  Report Type: Spontaneous
  Country: US (occurrence: None)
  Receive Date: 20140306
  Receipt Date: 20140306
  Transmission Date: 20141002
  Serious: Yes (Hospitalization)
  Sender: FDA-Public Use
  Company Number: 163-21880-13061913

PATIENT
  Age: 86 Year
  Sex: Female
  Weight: 42.64 kg

DRUGS (14)
  1. REVLIMID [Suspect]
     Indication: PLASMA CELL MYELOMA
     Route: 048
     Dates: start: 20111123, end: 2013
  2. LORAZEPAM (LORAZEPAM) [Concomitant]
  3. NORTRIPTYLINE (NORTRIPTYLINE) [Concomitant]
  4. OMEPRAZOLE (OMEPRAZOLE) [Concomitant]
  5. TRAMADOL (TRAMADOL) [Concomitant]
  6. WARFARIN (WARFARIN) [Concomitant]
  7. ONDANSETRON (ONDANSETRON) [Concomitant]
  8. ZOMETA (ZOLEDRONIC ACID) [Concomitant]
  9. PROCRIT [Concomitant]
  10. ALLOPURINOL (ALLOPURINOL) [Concomitant]
  11. LIDODERM (LIDOCAINE) [Concomitant]
  12. MULTIPLE VITAMINS [Concomitant]
  13. VITAMIN C (ASCORBIC ACID) [Concomitant]
  14. ZOFRAN [Concomitant]

REACTIONS (3)
  - Bronchitis [None]
  - Plasma cell myeloma [None]
  - Diarrhoea [None]
